FAERS Safety Report 14514963 (Version 1)
Quarter: 2018Q1

REPORT INFORMATION
  Report Type: Spontaneous
  Country: DK (occurrence: DK)
  Receive Date: 20180209
  Receipt Date: 20180209
  Transmission Date: 20180509
  Serious: Yes (Hospitalization)
  Sender: FDA-Public Use
  Company Number: DK-CONCORDIA PHARMACEUTICALS INC.-E2B_00009792

PATIENT
  Age: 62 Year
  Sex: Female

DRUGS (8)
  1. BONYL [Suspect]
     Active Substance: NAPROXEN
     Indication: PROCEDURAL PAIN
     Dosage: STYRKE: 500 MG.
     Route: 048
     Dates: start: 20171215, end: 20171217
  2. KLAXIMOL [Suspect]
     Active Substance: AMOXICILLIN\CLAVULANATE POTASSIUM
     Indication: INFECTION PROPHYLAXIS
     Dosage: STYRKE: 500 MG+125 MG.
     Route: 048
     Dates: start: 20171215, end: 20171219
  3. MORFIN ^ALTERNOVA^ [Concomitant]
     Active Substance: MORPHINE HYDROCHLORIDE
     Indication: PROCEDURAL PAIN
     Dosage: STYRKE: 10 MG.
     Route: 048
     Dates: start: 20171216, end: 20171218
  4. PREDNISOLONE. [Suspect]
     Active Substance: PREDNISOLONE
     Indication: PHARYNGEAL OEDEMA
     Dosage: STYRKE: 25 MG.
     Route: 048
     Dates: start: 20171215, end: 20171219
  5. METHOTREXATE ^ORION^ [Concomitant]
     Indication: RHEUMATOID ARTHRITIS
     Dosage: DOSIS: 0,6 ML = 15 MG SENEST GIVET 18DEC2017, 25DEC2017 OG 01JAN2018. STYRKE: 25 MG/ML
  6. ROXIMSTAD [Suspect]
     Active Substance: ROXITHROMYCIN
     Indication: INFECTION PROPHYLAXIS
     Dosage: STYRKE: 150 MG.
     Route: 048
     Dates: end: 20171222
  7. PAMOL [Concomitant]
     Active Substance: ACETAMINOPHEN
     Indication: PROCEDURAL PAIN
     Dosage: STYRKE: 500 MG.
     Route: 048
     Dates: start: 20171215, end: 20171219
  8. FOLIMET [Concomitant]
     Indication: VITAMIN SUPPLEMENTATION
     Dosage: STYRKE: 5 MG. DOSIS: 5 MG DAGLIGT, UNDTAGEN DAGE, HVOR DER GIVES METHOTREXAT
     Route: 048
     Dates: start: 20160302

REACTIONS (6)
  - Decreased appetite [Recovered/Resolved]
  - Chills [Recovered/Resolved]
  - Nausea [Recovered/Resolved]
  - Vomiting [Recovered/Resolved]
  - Abdominal pain [Recovered/Resolved]
  - Oral fungal infection [Recovered/Resolved]

NARRATIVE: CASE EVENT DATE: 20171218
